FAERS Safety Report 5240047-9 (Version None)
Quarter: 2007Q1

REPORT INFORMATION
  Report Type: 
  Country: None (occurrence: None)
  Receive Date: 20070216
  Receipt Date: 20070205
  Transmission Date: 20070707
  Serious: Yes (Hospitalization)
  Sender: FDA-Public Use
  Company Number: FR-PFIZER INC-2007009436

PATIENT
  Sex: Male
  Weight: 75 kg

DRUGS (4)
  1. TAHOR [Suspect]
     Route: 048
     Dates: start: 20061008, end: 20061113
  2. TRIATEC [Suspect]
     Route: 048
     Dates: start: 20061008, end: 20061113
  3. CARDENSIEL [Suspect]
     Route: 048
     Dates: start: 20061008, end: 20061113
  4. PLAVIX [Suspect]
     Route: 048
     Dates: start: 20061008, end: 20061113

REACTIONS (3)
  - RETINOPATHY [None]
  - VISUAL ACUITY REDUCED [None]
  - VITRITIS [None]
